FAERS Safety Report 5262551-X (Version None)
Quarter: 2007Q1

REPORT INFORMATION
  Report Type: 
  Country: None (occurrence: None)
  Receive Date: 20070312
  Receipt Date: 20070226
  Transmission Date: 20070707
  Serious: Yes (Hospitalization)
  Sender: FDA-Public Use
  Company Number: PHNU2007DE00665

PATIENT
  Age: 75 Year
  Sex: Female

DRUGS (2)
  1. ZOMETA [Suspect]
     Indication: MULTIPLE MYELOMA
     Dates: start: 20040101
  2. ACETYLSALICYLIC ACID SRT [Suspect]
     Route: 065

REACTIONS (23)
  - ACTINOMYCOSIS [None]
  - BONE DISORDER [None]
  - CONDITION AGGRAVATED [None]
  - DENTAL ALVEOLAR ANOMALY [None]
  - DENTAL FISTULA [None]
  - DENTAL OPERATION [None]
  - GENERAL ANAESTHESIA [None]
  - HAEMOGLOBIN DECREASED [None]
  - HISTOLOGY ABNORMAL [None]
  - JAW DISORDER [None]
  - NASAL OPERATION [None]
  - OPERATIVE HAEMORRHAGE [None]
  - OSTEITIS [None]
  - OSTEOMYELITIS CHRONIC [None]
  - OSTEONECROSIS [None]
  - OSTEOTOMY [None]
  - POST PROCEDURAL HAEMATOMA [None]
  - PRIMARY SEQUESTRUM [None]
  - PURULENT DISCHARGE [None]
  - SEQUESTRECTOMY [None]
  - SWELLING [None]
  - TOOTH LOSS [None]
  - X-RAY ABNORMAL [None]
